FAERS Safety Report 6829530-X (Version None)
Quarter: 2010Q3

REPORT INFORMATION
  Report Type: 
  Country: None (occurrence: None)
  Receive Date: 20100709
  Receipt Date: 20070314
  Transmission Date: 20110219
  Serious: Yes (Other)
  Sender: FDA-Public Use
  Company Number: US-PFIZER INC-2007019840

PATIENT
  Sex: Female
  Weight: 64.9 kg

DRUGS (5)
  1. CHANTIX [Suspect]
     Indication: EX-TOBACCO USER
  2. CORTICOSTEROID NOS [Suspect]
     Indication: ASTHMA
  3. ADVAIR DISKUS 100/50 [Concomitant]
     Indication: ASTHMA
     Route: 055
  4. CYMBALTA [Concomitant]
  5. ALL OTHER THERAPEUTIC PRODUCTS [Concomitant]
     Indication: ASTHMA

REACTIONS (12)
  - ANXIETY [None]
  - ASTHMA [None]
  - CUSHINGOID [None]
  - DEPRESSION [None]
  - LIPOHYPERTROPHY [None]
  - NAUSEA [None]
  - RESTLESSNESS [None]
  - STRESS [None]
  - SWELLING [None]
  - TREMOR [None]
  - WEIGHT DECREASED [None]
  - WEIGHT INCREASED [None]
